FAERS Safety Report 9508578 (Version 3)
Quarter: 2013Q4

REPORT INFORMATION
  Report Type: Spontaneous
  Country: US (occurrence: US)
  Receive Date: 20130909
  Receipt Date: 20131025
  Transmission Date: 20140711
  Serious: Yes (Hospitalization, Other)
  Sender: FDA-Public Use
  Company Number: US-009507513-1203USA01685

PATIENT
  Sex: Female

DRUGS (6)
  1. FOSAMAX [Suspect]
     Indication: OSTEOPOROSIS
     Dosage: 10 MG, QD
     Route: 048
     Dates: start: 199910, end: 200802
  2. FOSAMAX [Suspect]
     Dosage: 70 MG, UNK
     Route: 048
     Dates: start: 199910, end: 200802
  3. VIACTIV SOFT CALCIUM CHEWS [Concomitant]
     Dosage: 3 DF, QD
     Dates: start: 199910
  4. CALCIUM (UNSPECIFIED) [Concomitant]
     Indication: OSTEOPOROSIS
     Dosage: 1500 MG, UNK
  5. VITAMIN D (UNSPECIFIED) [Concomitant]
     Indication: OSTEOPOROSIS
     Dosage: 400 IU, UNK
  6. CLARITIN [Concomitant]
     Indication: RHINITIS ALLERGIC
     Dosage: 10MGQD
     Route: 048

REACTIONS (17)
  - Femur fracture [Unknown]
  - Open reduction of fracture [Unknown]
  - Coronary artery bypass [Unknown]
  - Vascular graft [Unknown]
  - Impaired healing [Unknown]
  - Low turnover osteopathy [Unknown]
  - Escherichia urinary tract infection [Unknown]
  - Hypertension [Unknown]
  - Anxiety [Unknown]
  - Hypercholesterolaemia [Unknown]
  - Hyperglycaemia [Unknown]
  - Angiopathy [Unknown]
  - Hyperproteinaemia [Unknown]
  - Anaemia postoperative [Recovered/Resolved]
  - Osteoarthritis [Unknown]
  - Bone lesion [Unknown]
  - Hypocalcaemia [Unknown]
